FAERS Safety Report 13648144 (Version 1)
Quarter: 2017Q2

REPORT INFORMATION
  Report Type: Report from Study
  Country: US (occurrence: US)
  Receive Date: 20170613
  Receipt Date: 20170613
  Transmission Date: 20170830
  Serious: Yes (Hospitalization)
  Sender: FDA-Public Use
  Company Number: US-BAYER-2017-108441

PATIENT
  Age: 69 Year
  Sex: Male

DRUGS (3)
  1. CARAFATE [Concomitant]
     Active Substance: SUCRALFATE
  2. NEXAVAR [Suspect]
     Active Substance: SORAFENIB
     Indication: MYELODYSPLASTIC SYNDROME
     Dosage: UNK
     Route: 065
  3. ZOVIRAX [Concomitant]
     Active Substance: ACYCLOVIR

REACTIONS (3)
  - Off label use [None]
  - Product use in unapproved indication [None]
  - Hospitalisation [None]

NARRATIVE: CASE EVENT DATE: 20170605
